FAERS Safety Report 6219349-5 (Version None)
Quarter: 2009Q2

REPORT INFORMATION
  Report Type: 
  Country: None (occurrence: None)
  Receive Date: 20090605
  Receipt Date: 20090605
  Transmission Date: 20091009
  Serious: Yes (Other)
  Sender: FDA-Public Use
  Company Number: None

PATIENT
  Age: 78 Year
  Sex: Female
  Weight: 124.7392 kg

DRUGS (1)
  1. DIOVAN HCT [Suspect]
     Indication: HYPERTENSION
     Dosage: 160/25MG ONE TIME A DAY PO
     Route: 048
     Dates: start: 20090425, end: 20090603

REACTIONS (8)
  - CARDIAC FLUTTER [None]
  - CHAPPED LIPS [None]
  - DIZZINESS POSTURAL [None]
  - FEELING ABNORMAL [None]
  - LIP DRY [None]
  - MICTURITION URGENCY [None]
  - URINARY INCONTINENCE [None]
  - VERTIGO [None]
